FAERS Safety Report 8345239-8 (Version None)
Quarter: 2012Q2

REPORT INFORMATION
  Report Type: 
  Country: None (occurrence: None)
  Receive Date: 20120504
  Receipt Date: 20120320
  Transmission Date: 20120825
  Serious: Yes (Other)
  Sender: FDA-Public Use
  Company Number: 12234701-2012-00001

PATIENT
  Sex: Female

DRUGS (6)
  1. HUMALOG [Concomitant]
  2. POTASSIUM CHLORIDE [Concomitant]
  3. AMITRIPTYLINE HYDROCHLORIDE [Concomitant]
  4. LASIX [Concomitant]
  5. PHOSLYRA [Suspect]
     Indication: HYPERPHOSPHATAEMIA
     Dosage: PO
     Route: 048
     Dates: start: 20120320
  6. NOVOLOG [Concomitant]

REACTIONS (1)
  - BLOOD POTASSIUM DECREASED [None]
